FAERS Safety Report 7125807-1 (Version None)
Quarter: 2010Q4

REPORT INFORMATION
  Report Type: 
  Country: None (occurrence: None)
  Receive Date: 20101129
  Receipt Date: 20101122
  Transmission Date: 20110411
  Serious: Yes (Other)
  Sender: FDA-Public Use
  Company Number: B0686358A

PATIENT
  Age: 46 Year
  Sex: Female

DRUGS (3)
  1. TYVERB [Suspect]
     Indication: BREAST CANCER
     Dosage: 1250MG PER DAY
     Route: 048
     Dates: start: 20091030
  2. XELODA [Concomitant]
     Indication: BREAST CANCER
     Dosage: 3000MG PER DAY
     Dates: start: 20101030
  3. ZOMETA [Concomitant]

REACTIONS (2)
  - LEUKOPENIA [None]
  - PALMAR-PLANTAR ERYTHRODYSAESTHESIA SYNDROME [None]
